FAERS Safety Report 6600733-2 (Version None)
Quarter: 2010Q1

REPORT INFORMATION
  Report Type: 
  Country: None (occurrence: None)
  Receive Date: 20100223
  Receipt Date: 20100223
  Transmission Date: 20100710
  Serious: Yes (Hospitalization)
  Sender: FDA-Public Use
  Company Number: None

PATIENT
  Sex: Male
  Weight: 94.77 kg

DRUGS (2)
  1. MERREM [Suspect]
     Indication: BRAIN ABSCESS
     Dosage: 2 GRAMS EVERY 8 HOURS IV DRIP
     Route: 041
     Dates: start: 20091229, end: 20100217
  2. KEPPRA [Suspect]
     Indication: BRAIN ABSCESS
     Dosage: 500 MG EVERY 12 HOURS PO
     Route: 048
     Dates: start: 20091213, end: 20100219

REACTIONS (1)
  - NEUTROPENIA [None]
